FAERS Safety Report 8384951-1 (Version None)
Quarter: 2012Q2

REPORT INFORMATION
  Report Type: 
  Country: None (occurrence: None)
  Receive Date: 20120524
  Receipt Date: 20120518
  Transmission Date: 20120825
  Serious: Yes (Hospitalization)
  Sender: FDA-Public Use
  Company Number: PHHY2012IT043185

PATIENT
  Sex: Male

DRUGS (3)
  1. EVEROLIMUS [Suspect]
     Dates: start: 20120505
  2. CYCLOSPORINE [Suspect]
     Dosage: 75 MG + 100 MG
     Dates: start: 20120404
  3. EVEROLIMUS [Suspect]
     Dosage: 0.75 MG, BID
     Dates: start: 20120404, end: 20120425

REACTIONS (2)
  - INFECTED LYMPHOCELE [None]
  - LYMPHOCELE [None]
